FAERS Safety Report 14206642 (Version 1)
Quarter: 2017Q4

REPORT INFORMATION
  Report Type: Spontaneous
  Country: US (occurrence: US)
  Receive Date: 20171120
  Receipt Date: 20171120
  Transmission Date: 20180321
  Serious: No
  Sender: FDA-Public Use
  Company Number: US-009507513-1711USA006478

PATIENT
  Age: 40 Year
  Sex: Female

DRUGS (1)
  1. PEGINTRON [Suspect]
     Active Substance: PEGINTERFERON ALFA-2B
     Indication: ESSENTIAL THROMBOCYTHAEMIA
     Dosage: 50MCG/0.5 ML, QW
     Route: 058
     Dates: start: 20161129

REACTIONS (1)
  - Full blood count increased [Unknown]

NARRATIVE: CASE EVENT DATE: 20171114
